FAERS Safety Report 21433408 (Version 2)
Quarter: 2022Q4

REPORT INFORMATION
  Report Type: Other
  Country: CA (occurrence: None)
  Receive Date: 20221010
  Receipt Date: 20221104
  Transmission Date: 20230112
  Serious: No
  Sender: FDA-Public Use
  Company Number: CA-ROCHE-3195121

PATIENT
  Age: 32 Year
  Sex: Male

DRUGS (5)
  1. OCREVUS [Suspect]
     Active Substance: OCRELIZUMAB
     Indication: Relapsing-remitting multiple sclerosis
     Dosage: 300 MG AT DAY 0 AND 14, THEN 600 MG EVERY 6 MONTH
     Route: 042
     Dates: start: 20191104
  2. FISH OIL [Concomitant]
     Active Substance: FISH OIL
  3. CANNABIDIOL [Concomitant]
     Active Substance: CANNABIDIOL
  4. VITAMIN C [Concomitant]
     Active Substance: ASCORBIC ACID
  5. PFIZER-BIONTECH COVID-19 VACCINE [Concomitant]
     Active Substance: TOZINAMERAN

REACTIONS (2)
  - COVID-19 [Recovered/Resolved]
  - Nasopharyngitis [Unknown]

NARRATIVE: CASE EVENT DATE: 20220401
